FAERS Safety Report 21976030 (Version 2)
Quarter: 2023Q1

REPORT INFORMATION
  Report Type: Spontaneous
  Country: JP (occurrence: JP)
  Receive Date: 20230210
  Receipt Date: 20230306
  Transmission Date: 20230417
  Serious: Yes (Hospitalization, Other)
  Sender: FDA-Public Use
  Company Number: JP-INSMED, INC.-2023-00384-JP

PATIENT
  Age: 80 Year
  Sex: Female

DRUGS (1)
  1. ARIKAYCE [Suspect]
     Active Substance: AMIKACIN
     Indication: Mycobacterium avium complex infection
     Dosage: 590 MILLIGRAM, QD
     Route: 055

REACTIONS (3)
  - Mycobacterium abscessus infection [Unknown]
  - Mycobacterium avium complex infection [Unknown]
  - Drug ineffective [Unknown]
